FAERS Safety Report 10403242 (Version 1)
Quarter: 2014Q3

REPORT INFORMATION
  Report Type: Spontaneous
  Country: US (occurrence: US)
  Receive Date: 20140822
  Receipt Date: 20140822
  Transmission Date: 20150326
  Serious: Yes (Other)
  Sender: FDA-Public Use
  Company Number: US-PFIZER INC-2014231600

PATIENT
  Age: 66 Year
  Sex: Male
  Weight: 131 kg

DRUGS (1)
  1. DILANTIN [Suspect]
     Active Substance: PHENYTOIN
     Dosage: UNK
     Dates: start: 1984

REACTIONS (8)
  - Fall [Unknown]
  - Motor dysfunction [Unknown]
  - Coordination abnormal [Unknown]
  - Osteopenia [Unknown]
  - Convulsion [Unknown]
  - Muscular weakness [Unknown]
  - Rash generalised [Unknown]
  - Gingival hyperplasia [Unknown]
